FAERS Safety Report 4657988-3 (Version None)
Quarter: 2005Q2

REPORT INFORMATION
  Report Type: 
  Country: None (occurrence: None)
  Receive Date: 20050504
  Receipt Date: 20050204
  Transmission Date: 20051028
  Serious: Yes (Hospitalization, Other)
  Sender: FDA-Public Use
  Company Number: PHEH2005US01676

PATIENT
  Age: 68 Year
  Sex: Female

DRUGS (4)
  1. DIOVAN HCT [Suspect]
     Indication: HYPERTENSION
     Dosage: 160MG VAL/25 MG HCT QD ORAL
     Route: 048
     Dates: start: 20030101
  2. ACETYLSALICYLIC ACID SRT [Concomitant]
  3. CALCIUM GLUCONATE [Concomitant]
  4. ZOCOR [Concomitant]

REACTIONS (3)
  - BLOOD POTASSIUM DECREASED [None]
  - ELECTROCARDIOGRAM ABNORMAL [None]
  - PAIN IN EXTREMITY [None]
